FAERS Safety Report 23959222 (Version 2)
Quarter: 2025Q3

REPORT INFORMATION
  Report Type: Spontaneous
  Country: US (occurrence: US)
  Receive Date: 20240611
  Receipt Date: 20250916
  Transmission Date: 20251021
  Serious: No
  Sender: BRISTOL-MYERS SQUIBB COMPANY
  Company Number: US-BRISTOL-MYERS SQUIBB COMPANY-2024-093616

PATIENT
  Age: 83 Year
  Sex: Female

DRUGS (2)
  1. REVLIMID [Suspect]
     Active Substance: LENALIDOMIDE
     Indication: Plasma cell myeloma
     Dates: start: 202403
  2. REVLIMID [Suspect]
     Active Substance: LENALIDOMIDE
     Dates: start: 202403

REACTIONS (5)
  - Fatigue [Unknown]
  - Rash [Unknown]
  - Muscle spasms [Unknown]
  - Productive cough [Unknown]
  - Dyspnoea [Unknown]
